FAERS Safety Report 24589268 (Version 1)
Quarter: 2024Q4

REPORT INFORMATION
  Report Type: Spontaneous
  Country: FR (occurrence: FR)
  Receive Date: 20241107
  Receipt Date: 20241107
  Transmission Date: 20250115
  Serious: Yes (Disabling)
  Sender: PFIZER
  Company Number: None

PATIENT
  Age: 63 Year
  Sex: Male
  Weight: 78 kg

DRUGS (29)
  1. CYTARABINE [Suspect]
     Active Substance: CYTARABINE
     Indication: B-cell type acute leukaemia
     Dosage: 40 MG
     Route: 037
     Dates: start: 20240614, end: 20240614
  2. CYTARABINE [Suspect]
     Active Substance: CYTARABINE
     Dosage: 40 MG
     Route: 037
     Dates: start: 20240618, end: 20240618
  3. CYTARABINE [Suspect]
     Active Substance: CYTARABINE
     Dosage: 40 MG
     Route: 037
     Dates: start: 20240623, end: 20240623
  4. CYTARABINE [Suspect]
     Active Substance: CYTARABINE
     Dosage: 40 MG
     Route: 037
     Dates: start: 20240628, end: 20240628
  5. CYTARABINE [Suspect]
     Active Substance: CYTARABINE
     Dosage: 40 MG
     Route: 037
     Dates: start: 20240716, end: 20240716
  6. CYTARABINE [Suspect]
     Active Substance: CYTARABINE
     Dosage: 40 MG
     Route: 037
     Dates: start: 20240801, end: 20240801
  7. CYTARABINE [Suspect]
     Active Substance: CYTARABINE
     Dosage: 40 MG
     Route: 037
     Dates: start: 20240814, end: 20240814
  8. CYTARABINE [Suspect]
     Active Substance: CYTARABINE
     Dosage: 40 MG
     Route: 037
     Dates: start: 20240909, end: 20240909
  9. CYTARABINE [Suspect]
     Active Substance: CYTARABINE
     Dosage: 40 MG
     Route: 037
     Dates: start: 20241007, end: 20241007
  10. METHOTREXATE [Suspect]
     Active Substance: METHOTREXATE
     Indication: B-cell type acute leukaemia
     Dosage: 15 MG
     Route: 037
     Dates: start: 20240614, end: 20240614
  11. METHOTREXATE [Suspect]
     Active Substance: METHOTREXATE
     Dosage: 15 MG
     Route: 037
     Dates: start: 20240618, end: 20240618
  12. METHOTREXATE [Suspect]
     Active Substance: METHOTREXATE
     Dosage: 15 MG
     Route: 037
     Dates: start: 20240623, end: 20240623
  13. METHOTREXATE [Suspect]
     Active Substance: METHOTREXATE
     Dosage: 15 MG
     Route: 037
     Dates: start: 20240628, end: 20240628
  14. METHOTREXATE [Suspect]
     Active Substance: METHOTREXATE
     Dosage: 15 MG
     Route: 037
     Dates: start: 20240716, end: 20240716
  15. METHOTREXATE [Suspect]
     Active Substance: METHOTREXATE
     Dosage: 15 MG
     Route: 037
     Dates: start: 20240801, end: 20240801
  16. METHOTREXATE [Suspect]
     Active Substance: METHOTREXATE
     Dosage: 15 MG
     Route: 037
     Dates: start: 20240814, end: 20240814
  17. METHOTREXATE [Suspect]
     Active Substance: METHOTREXATE
     Dosage: 15 MG
     Route: 037
     Dates: start: 20240909, end: 20240909
  18. METHOTREXATE [Suspect]
     Active Substance: METHOTREXATE
     Dosage: 15 MG
     Route: 037
     Dates: start: 20241007, end: 20241007
  19. HYDROCORTISONE [Suspect]
     Active Substance: HYDROCORTISONE
     Indication: B-cell type acute leukaemia
     Dosage: 20 MG
     Route: 037
     Dates: start: 20240614, end: 20240614
  20. HYDROCORTISONE [Suspect]
     Active Substance: HYDROCORTISONE
     Dosage: 20 MG
     Route: 037
     Dates: start: 20240618, end: 20240618
  21. HYDROCORTISONE [Suspect]
     Active Substance: HYDROCORTISONE
     Dosage: 20 MG
     Route: 037
     Dates: start: 20240623, end: 20240623
  22. HYDROCORTISONE [Suspect]
     Active Substance: HYDROCORTISONE
     Dosage: 20 MG
     Route: 037
     Dates: start: 20240628, end: 20240628
  23. HYDROCORTISONE [Suspect]
     Active Substance: HYDROCORTISONE
     Dosage: 20 MG
     Route: 037
     Dates: start: 20240716, end: 20240716
  24. HYDROCORTISONE [Suspect]
     Active Substance: HYDROCORTISONE
     Dosage: 20 MG
     Route: 037
     Dates: start: 20240801, end: 20240801
  25. HYDROCORTISONE [Suspect]
     Active Substance: HYDROCORTISONE
     Dosage: 20 MG
     Route: 037
     Dates: start: 20240814, end: 20240814
  26. HYDROCORTISONE [Suspect]
     Active Substance: HYDROCORTISONE
     Dosage: 20 MG
     Route: 037
     Dates: start: 20240909, end: 20240909
  27. HYDROCORTISONE [Suspect]
     Active Substance: HYDROCORTISONE
     Dosage: 20 MG
     Route: 037
     Dates: start: 20241007, end: 20241007
  28. BLINATUMOMAB [Suspect]
     Active Substance: BLINATUMOMAB
     Indication: B-cell type acute leukaemia
     Dosage: 28 UG, CYCLIC
     Route: 042
     Dates: start: 20240715, end: 20240812
  29. BLINATUMOMAB [Suspect]
     Active Substance: BLINATUMOMAB
     Dosage: 28 UG, CYCLIC
     Route: 042
     Dates: start: 20240909, end: 20241007

REACTIONS (4)
  - Gait disturbance [Not Recovered/Not Resolved]
  - Paraesthesia [Not Recovered/Not Resolved]
  - Radiculopathy [Not Recovered/Not Resolved]
  - Arachnoiditis [Not Recovered/Not Resolved]

NARRATIVE: CASE EVENT DATE: 20241001
